FAERS Safety Report 5011468-4 (Version None)
Quarter: 2006Q2

REPORT INFORMATION
  Report Type: 
  Country: None (occurrence: None)
  Receive Date: 20060525
  Receipt Date: 20060417
  Transmission Date: 20061013
  Serious: Yes (Hospitalization, Other)
  Sender: FDA-Public Use
  Company Number: US-MERCK-0604USA02631

PATIENT
  Age: 50 Year
  Sex: Female

DRUGS (4)
  1. ZETIA [Suspect]
     Indication: BLOOD CHOLESTEROL
     Route: 048
     Dates: start: 20060111, end: 20060306
  2. ACCUPRIL [Concomitant]
     Route: 065
  3. GLUCOPHAGE [Concomitant]
     Route: 065
     Dates: end: 20030301
  4. TEGRETOL [Concomitant]
     Indication: CONVULSION
     Route: 065

REACTIONS (4)
  - CONVULSION [None]
  - DRUG LEVEL DECREASED [None]
  - GRAND MAL CONVULSION [None]
  - TONIC CONVULSION [None]
